FAERS Safety Report 7394825-0 (Version None)
Quarter: 2011Q2

REPORT INFORMATION
  Report Type: 
  Country: None (occurrence: None)
  Receive Date: 20110405
  Receipt Date: 20101102
  Transmission Date: 20111010
  Serious: Yes (Other)
  Sender: FDA-Public Use
  Company Number: A0890301A

PATIENT
  Age: 75 Year
  Sex: Male

DRUGS (10)
  1. ADVAIR DISKUS 100/50 [Suspect]
     Indication: CHRONIC OBSTRUCTIVE PULMONARY DISEASE
     Dosage: 1PUFF TWICE PER DAY
     Route: 055
     Dates: start: 20071001
  2. UNKNOWN MEDICATION [Concomitant]
  3. ASPIRIN [Concomitant]
  4. CALCIUM + VIT D [Concomitant]
  5. IPRATROPIUM BROMIDE [Concomitant]
  6. PREDNISONE [Suspect]
     Route: 048
  7. ALBUTEROL [Concomitant]
  8. ARICEPT [Concomitant]
  9. MIRALAX [Concomitant]
  10. OXYGEN [Concomitant]

REACTIONS (1)
  - CATARACT [None]
